FAERS Safety Report 20633471 (Version 1)
Quarter: 2022Q1

REPORT INFORMATION
  Report Type: Spontaneous
  Country: IT (occurrence: IT)
  Receive Date: 20220324
  Receipt Date: 20220324
  Transmission Date: 20220423
  Serious: Yes (Other)
  Sender: FDA-Public Use
  Company Number: IT-ELI_LILLY_AND_COMPANY-IT202203007728

PATIENT
  Age: 64 Year
  Sex: Female

DRUGS (1)
  1. IXEKIZUMAB [Suspect]
     Active Substance: IXEKIZUMAB
     Indication: Psoriasis
     Dosage: UNK, UNKNOWN
     Route: 065

REACTIONS (3)
  - Colorectal cancer [Recovering/Resolving]
  - Psoriasis [Unknown]
  - Seborrhoeic keratosis [Unknown]
